FAERS Safety Report 15224197 (Version 8)
Quarter: 2022Q2

REPORT INFORMATION
  Report Type: Spontaneous
  Country: US (occurrence: US)
  Receive Date: 20180731
  Receipt Date: 20220407
  Transmission Date: 20220720
  Serious: Yes (Death, Hospitalization, Other)
  Sender: FDA-Public Use
  Company Number: US-VIFOR (INTERNATIONAL) INC.-VIT-2018-07428

PATIENT
  Age: 71 Year
  Sex: Female
  Weight: 53.572 kg

DRUGS (23)
  1. VELTASSA [Suspect]
     Active Substance: PATIROMER
     Indication: Hyperkalaemia
     Route: 048
     Dates: start: 20160617, end: 201807
  2. VELTASSA [Suspect]
     Active Substance: PATIROMER
     Dates: start: 201807
  3. VELTASSA [Suspect]
     Active Substance: PATIROMER
     Route: 048
     Dates: start: 201606
  4. HUMALOG KWIKPEN [Concomitant]
     Active Substance: INSULIN LISPRO
  5. ASPIRIN [Concomitant]
     Active Substance: ASPIRIN
  6. ZEMPLAR [Concomitant]
     Active Substance: PARICALCITOL
  7. LANTUS [Concomitant]
     Active Substance: INSULIN GLARGINE
  8. ATORVASTATIN CALCIUM [Concomitant]
     Active Substance: ATORVASTATIN CALCIUM
  9. MYFORTIC [Concomitant]
     Active Substance: MYCOPHENOLATE SODIUM
  10. PREDNISONE [Concomitant]
     Active Substance: PREDNISONE
  11. PANTOPRAZOLE SODIUM [Concomitant]
     Active Substance: PANTOPRAZOLE SODIUM
  12. LEVOTHYROXINE SODIUM [Concomitant]
     Active Substance: LEVOTHYROXINE SODIUM
  13. CLONIDINE HYDROCHLORIDE [Concomitant]
     Active Substance: CLONIDINE HYDROCHLORIDE
  14. NEORAL [Concomitant]
     Active Substance: CYCLOSPORINE
  15. VITAMIN B12 [Concomitant]
     Active Substance: CYANOCOBALAMIN
  16. CARVEDILOL [Concomitant]
     Active Substance: CARVEDILOL
     Dosage: 25 TABLETS
  17. MONTELUKAST [Concomitant]
     Active Substance: MONTELUKAST SODIUM
  18. FERROUS SULFATE [Concomitant]
     Active Substance: FERROUS SULFATE
  19. FAMOTIDINE [Concomitant]
     Active Substance: FAMOTIDINE
     Route: 048
  20. SERTRALINE [Concomitant]
     Active Substance: SERTRALINE HYDROCHLORIDE
  21. SPIRONOLACTONE [Concomitant]
     Active Substance: SPIRONOLACTONE
     Dosage: 1/2 TABLET
  22. POLYETHYLENE GLYCOL 3350 [Concomitant]
     Active Substance: POLYETHYLENE GLYCOL 3350
  23. VITAMIN D3 [Concomitant]
     Active Substance: CHOLECALCIFEROL

REACTIONS (6)
  - Death [Fatal]
  - Hospitalisation [Unknown]
  - Renal disorder [Unknown]
  - Gastrointestinal disorder [Unknown]
  - COVID-19 [Unknown]
  - Off label use [Unknown]

NARRATIVE: CASE EVENT DATE: 20160617
